FAERS Safety Report 17000528 (Version 1)
Quarter: 2019Q4

REPORT INFORMATION
  Report Type: Spontaneous
  Country: NL (occurrence: NL)
  Receive Date: 20191106
  Receipt Date: 20191106
  Transmission Date: 20200122
  Serious: Yes (Life-Threatening)
  Sender: FDA-Public Use
  Company Number: NL-MYLANLABS-2019M1104570

PATIENT
  Age: 61 Year
  Sex: Male
  Weight: 160 kg

DRUGS (18)
  1. OMEPRAZOL                          /00661201/ [Concomitant]
     Active Substance: OMEPRAZOLE
     Dosage: 1 X PER DAG 20 MILLIGRAM
     Route: 048
  2. AMOXICILLIN/CLAVULANIC ACID [Interacting]
     Active Substance: AMOXICILLIN\CLAVULANIC ACID
     Indication: URINARY TRACT INFECTION
     Dosage: 1 DOSAGE FORM, Q8H, 3DD1
     Route: 048
     Dates: start: 20190505, end: 20190506
  3. ENALAPRIL [Concomitant]
     Active Substance: ENALAPRIL
     Dosage: 1 X PER DAG 40 MILLIGRAM
  4. NITROGLYCERINE [Concomitant]
     Active Substance: NITROGLYCERIN
     Dosage: ZONODIG BIJ KLACHTEN 1-2
     Route: 060
  5. CIPROFLOXACIN. [Interacting]
     Active Substance: CIPROFLOXACIN
     Indication: ERYSIPELAS
  6. TAVEGYL [Interacting]
     Active Substance: CLEMASTINE FUMARATE
     Indication: HYPERSENSITIVITY
     Dosage: 1 MILLIGRAM, BID, 2DD1
     Route: 048
     Dates: start: 20190506, end: 20190507
  7. GLICLAZIDE [Concomitant]
     Active Substance: GLICLAZIDE
     Dosage: 1 X PER DAG 30 MILLIGRAM
     Route: 048
  8. ROSUVASTATINE                      /01588601/ [Concomitant]
     Active Substance: ROSUVASTATIN
     Dosage: 1 X PER DAG 20 MILLIGRAM
  9. FLUCLOXACILLIN [Interacting]
     Active Substance: FLUCLOXACILLIN
     Indication: ERYSIPELAS
     Dosage: 500 MILLIGRAM, Q8H, 3DD1
     Route: 048
     Dates: start: 20190504, end: 20190505
  10. NIFEDIPINE. [Concomitant]
     Active Substance: NIFEDIPINE
     Dosage: 1 X PER DAG 30 MILLIGRAM
     Route: 048
  11. FUROSEMIDE. [Concomitant]
     Active Substance: FUROSEMIDE
     Dosage: 1 X PER DAG 40 MILLIGRAM
  12. METOPROLOL                         /00376903/ [Concomitant]
     Active Substance: METOPROLOL SUCCINATE
     Dosage: 1 X PER DAG 100 MILLIGRAM
     Route: 048
  13. AMLODIPINE [Concomitant]
     Active Substance: AMLODIPINE BESYLATE
     Dosage: 1 X PER DAG 10 MILLIGRAM
     Route: 048
  14. AMOXICILLIN/CLAVULANIC ACID [Interacting]
     Active Substance: AMOXICILLIN\CLAVULANIC ACID
     Indication: ERYSIPELAS
  15. CIPROFLOXACIN. [Suspect]
     Active Substance: CIPROFLOXACIN
     Indication: URINARY TRACT INFECTION
     Dosage: 500 MILLIGRAM, BID,2DD1
     Route: 048
     Dates: start: 20190506, end: 20190507
  16. EZETIMIBA [Concomitant]
     Active Substance: EZETIMIBE
     Dosage: 1 X PER DAG 10 MILLIGRAM
     Route: 048
  17. METFORMINE                         /00082701/ [Concomitant]
     Active Substance: METFORMIN HYDROCHLORIDE
     Dosage: 2 X PER DAG 500 MILLIGRAM
     Route: 048
  18. ACETYLSALICYLZUUR [Concomitant]
     Active Substance: ASPIRIN
     Dosage: 1 X PER DAG 80 MILLIGRAM

REACTIONS (3)
  - Ventricular tachycardia [Recovered/Resolved]
  - Drug interaction [Recovered/Resolved]
  - Ventricular extrasystoles [Recovered/Resolved]

NARRATIVE: CASE EVENT DATE: 20190507
